FAERS Safety Report 16589677 (Version 1)
Quarter: 2019Q3

REPORT INFORMATION
  Report Type: Report from Study
  Country: US (occurrence: US)
  Receive Date: 20190718
  Receipt Date: 20190718
  Transmission Date: 20191004
  Serious: Yes (Hospitalization)
  Sender: FDA-Public Use
  Company Number: US-SWEDISH ORPHAN BIOVITRUM-2019US0655

PATIENT
  Age: 2 Year
  Sex: Female
  Weight: 10.6 kg

DRUGS (12)
  1. KINERET [Suspect]
     Active Substance: ANAKINRA
     Dates: start: 20100202
  2. CEFTRIAXONE. [Suspect]
     Active Substance: CEFTRIAXONE
     Dates: start: 20101029
  3. PREDNISOLONE. [Concomitant]
     Active Substance: PREDNISOLONE
     Indication: DEFICIENCY OF THE INTERLEUKIN-1 RECEPTOR ANTAGONIST
     Dosage: 2 MG/KG/DAY
     Dates: start: 20080917
  4. PREDNISOLONE. [Concomitant]
     Active Substance: PREDNISOLONE
  5. KINERET [Suspect]
     Active Substance: ANAKINRA
     Dosage: 2.5 MG/KG/DAY. ?ON 09FEB2010 (WEIGHT = 7.74KG) DAILY DOSE = 19.4
     Dates: start: 20100205
  6. PREDNISOLONE. [Concomitant]
     Active Substance: PREDNISOLONE
     Dosage: 0.74 MG/KG/DAY (WEIGHT = 7.74KG)
     Dates: start: 20100209
  7. PREDNISONE. [Concomitant]
     Active Substance: PREDNISONE
     Dosage: 0.16 MG/KG/DAY (WEIGHT = 10.6 KG)
     Dates: start: 20101020
  8. KINERET [Suspect]
     Active Substance: ANAKINRA
     Dosage: 2.96 MG/KG/DAY (WEIGHT= 10.6 KG)
     Dates: start: 20101020
  9. AZITHROMYCIN ANHYDROUS. [Suspect]
     Active Substance: AZITHROMYCIN ANHYDROUS
     Dates: start: 20101029
  10. PREDNISOLONE. [Concomitant]
     Active Substance: PREDNISOLONE
     Dosage: 1.28 MG/KG/DAY (WEIGH = 7KG)
     Dates: start: 20100201
  11. PREDNISONE. [Concomitant]
     Active Substance: PREDNISONE
     Dates: start: 20100118
  12. KINERET [Suspect]
     Active Substance: ANAKINRA
     Indication: DEFICIENCY OF THE INTERLEUKIN-1 RECEPTOR ANTAGONIST
     Dosage: 2 MG/KG/DAY (WEIGHT = 7 KG)
     Dates: start: 20100202

REACTIONS (2)
  - Pneumonia [Recovered/Resolved]
  - Hypersensitivity [Unknown]

NARRATIVE: CASE EVENT DATE: 20101029
